FAERS Safety Report 12896336 (Version 1)
Quarter: 2016Q4

REPORT INFORMATION
  Report Type: Spontaneous
  Country: US (occurrence: US)
  Receive Date: 20161031
  Receipt Date: 20161031
  Transmission Date: 20170207
  Serious: No
  Sender: FDA-Public Use
  Company Number: US-JAZZ-2016-US-016324

PATIENT
  Sex: Female

DRUGS (11)
  1. XYREM [Suspect]
     Active Substance: SODIUM OXYBATE
     Indication: NARCOLEPSY
     Dosage: 3 G, BID
     Route: 048
     Dates: start: 201603
  2. ALEVE [Concomitant]
     Active Substance: NAPROXEN SODIUM
  3. XYREM [Suspect]
     Active Substance: SODIUM OXYBATE
     Indication: CATAPLEXY
  4. CLONAZEPAM. [Concomitant]
     Active Substance: CLONAZEPAM
  5. CYCLOBENZAPRINE [Concomitant]
     Active Substance: CYCLOBENZAPRINE
  6. GABAPENTIN. [Concomitant]
     Active Substance: GABAPENTIN
  7. IBUPROFEN. [Concomitant]
     Active Substance: IBUPROFEN
  8. VITAMIN D3 [Concomitant]
     Active Substance: CHOLECALCIFEROL
  9. WELLBUTRIN [Concomitant]
     Active Substance: BUPROPION HYDROCHLORIDE
  10. DEXTROAMPHETAMINE. [Concomitant]
     Active Substance: DEXTROAMPHETAMINE
  11. PROVIGIL [Concomitant]
     Active Substance: MODAFINIL

REACTIONS (5)
  - Pre-existing condition improved [Unknown]
  - Tooth disorder [Unknown]
  - Snoring [Recovered/Resolved]
  - Skin disorder [Recovering/Resolving]
  - Dyspnoea [Recovered/Resolved]
